FAERS Safety Report 8839889 (Version 2)
Quarter: 2012Q4

REPORT INFORMATION
  Report Type: 
  Country: US (occurrence: US)
  Receive Date: 20121015
  Receipt Date: 20121108
  Transmission Date: 20130627
  Serious: No
  Sender: FDA-Public Use
  Company Number: US-009507513-1210USA006225

PATIENT
  Sex: Female
  Weight: 68.93 kg

DRUGS (4)
  1. RIBAVIRIN [Suspect]
     Dosage: 3 DF, qd
     Route: 048
     Dates: start: 20120910
  2. RIBAVIRIN [Suspect]
     Dosage: 2 DF, qd
  3. VICTRELIS [Suspect]
     Indication: CHRONIC HEPATITIS C
     Dosage: UNK UNK, bid
     Dates: start: 20121009
  4. PEGASYS [Concomitant]
     Indication: CHRONIC HEPATITIS C
     Dosage: UNK
     Dates: start: 20120910

REACTIONS (20)
  - Anaemia [Unknown]
  - Headache [Unknown]
  - Influenza like illness [Unknown]
  - Decreased appetite [Unknown]
  - Parosmia [Unknown]
  - Palpitations [Unknown]
  - Weight decreased [Unknown]
  - Nocturia [Unknown]
  - Dysgeusia [Unknown]
  - Nausea [Unknown]
  - Eructation [Unknown]
  - Asthenia [Unknown]
  - Fatigue [Unknown]
  - Drug dose omission [Unknown]
  - Vomiting [Unknown]
  - Throat irritation [Unknown]
  - Dysphagia [Unknown]
  - Aphagia [Unknown]
  - Dysgeusia [Unknown]
  - Heart rate increased [Unknown]
